FAERS Safety Report 10083389 (Version 1)
Quarter: 2014Q2

REPORT INFORMATION
  Report Type: Spontaneous
  Country: US (occurrence: None)
  Receive Date: 20140415
  Receipt Date: 20140415
  Transmission Date: 20141212
  Serious: Yes (Other)
  Sender: FDA-Public Use
  Company Number: None

PATIENT
  Age: 59 Year
  Sex: Female
  Weight: 95.26 kg

DRUGS (1)
  1. SERTRALINE [Suspect]
     Indication: PANIC ATTACK
     Dosage: 1 X PER DAY ONCE DAILY
     Route: 048
     Dates: start: 20131203, end: 20140310

REACTIONS (7)
  - Product substitution issue [None]
  - Product quality issue [None]
  - Drug effect decreased [None]
  - Abdominal distension [None]
  - Feeling abnormal [None]
  - Panic attack [None]
  - Condition aggravated [None]
